FAERS Safety Report 6222423-0 (Version None)
Quarter: 2009Q2

REPORT INFORMATION
  Report Type: 
  Country: None (occurrence: None)
  Receive Date: 20090609
  Receipt Date: 20090609
  Transmission Date: 20091009
  Serious: Yes (Other)
  Sender: FDA-Public Use
  Company Number: None

PATIENT
  Age: 40 Year
  Sex: Female
  Weight: 95.2554 kg

DRUGS (1)
  1. CELEXA [Suspect]
     Indication: PREMENSTRUAL SYNDROME
     Dosage: 20 MG DAILY PO YEAR AND A HALF
     Route: 048
     Dates: start: 20070906, end: 20090506

REACTIONS (4)
  - BLOOD CHOLESTEROL INCREASED [None]
  - HYPERTENSION [None]
  - VISUAL ACUITY REDUCED [None]
  - WEIGHT INCREASED [None]
